FAERS Safety Report 6919232-3 (Version None)
Quarter: 2010Q3

REPORT INFORMATION
  Report Type: 
  Country: None (occurrence: None)
  Receive Date: 20100811
  Receipt Date: 20100727
  Transmission Date: 20110219
  Serious: Yes (Other)
  Sender: FDA-Public Use
  Company Number: US-ROCHE-719324

PATIENT
  Sex: Female

DRUGS (1)
  1. BEVACIZUMAB [Suspect]
     Dosage: 0.05 ML. PERMANENTLY DISCONTINUED AFTER SEVENTH INJECTION
     Route: 031

REACTIONS (1)
  - EYE INFLAMMATION [None]
